FAERS Safety Report 10050146 (Version 1)
Quarter: 2014Q1

REPORT INFORMATION
  Report Type: Spontaneous
  Country: US (occurrence: None)
  Receive Date: 20140331
  Receipt Date: 20140331
  Transmission Date: 20141002
  Serious: Yes (Other)
  Sender: FDA-Public Use
  Company Number: None

PATIENT
  Age: 66 Year
  Sex: Male
  Weight: 62.6 kg

DRUGS (3)
  1. REFRESH OPTIVE ADVANCED [Suspect]
     Indication: DRY EYE
     Dates: start: 20140321, end: 20140324
  2. REFRESH OPTIVE ADVANCED [Suspect]
     Indication: PRURITUS
     Dates: start: 20140321, end: 20140324
  3. REFRESH OPTIVE [Suspect]
     Dosage: 1 DROP PER EYE TWICE DAILY DROP TO THE EYES
     Dates: start: 20140325, end: 20140317

REACTIONS (1)
  - Eye pain [None]
